FAERS Safety Report 14948260 (Version 5)
Quarter: 2019Q3

REPORT INFORMATION
  Report Type: Spontaneous
  Country: US (occurrence: US)
  Receive Date: 20180529
  Receipt Date: 20190702
  Transmission Date: 20191004
  Serious: No
  Sender: FDA-Public Use
  Company Number: US-PFIZER INC-2018217936

PATIENT
  Age: 58 Year
  Sex: Female
  Weight: 109 kg

DRUGS (1)
  1. VENLAFAXINE HCL [Suspect]
     Active Substance: VENLAFAXINE HYDROCHLORIDE
     Indication: MAJOR DEPRESSION
     Dosage: 150 MG, 1X/DAY (IN THE MORNING)
     Route: 048
     Dates: start: 201611, end: 201805

REACTIONS (4)
  - Respiration abnormal [Recovered/Resolved]
  - Weight increased [Recovered/Resolved]
  - Drug intolerance [Unknown]
  - Abdominal discomfort [Recovering/Resolving]

NARRATIVE: CASE EVENT DATE: 2018
